FAERS Safety Report 6305612-6 (Version None)
Quarter: 2009Q3

REPORT INFORMATION
  Report Type: 
  Country: None (occurrence: None)
  Receive Date: 20090806
  Receipt Date: 20090723
  Transmission Date: 20100115
  Serious: Yes (Death)
  Sender: FDA-Public Use
  Company Number: 2009AL005006

PATIENT
  Age: 73 Year
  Sex: Female

DRUGS (1)
  1. DICLOFENAC SODIUM DELAYED-RELEASE TABLETS, 75 MG (PUREPAC) (DICLOFENAC [Suspect]
     Indication: OSTEOARTHRITIS
     Dosage: 75 MG; PO
     Route: 048
     Dates: start: 20081103

REACTIONS (2)
  - CARDIAC ARREST [None]
  - FALL [None]
